FAERS Safety Report 9434210 (Version 1)
Quarter: 2013Q3

REPORT INFORMATION
  Report Type: Spontaneous
  Country: US (occurrence: US)
  Receive Date: 20130801
  Receipt Date: 20130801
  Transmission Date: 20140515
  Serious: Yes (Other)
  Sender: FDA-Public Use
  Company Number: US-AMGEN-USASP2013052360

PATIENT
  Sex: Female

DRUGS (1)
  1. PROLIA [Suspect]
     Indication: OSTEOPOROSIS
     Dosage: UNK
     Route: 065
     Dates: start: 20121008

REACTIONS (7)
  - Limb discomfort [Unknown]
  - Tooth fracture [Unknown]
  - Post procedural swelling [Unknown]
  - Post procedural infection [Unknown]
  - Musculoskeletal discomfort [Recovered/Resolved]
  - Mobility decreased [Unknown]
  - Asthenia [Unknown]
